FAERS Safety Report 5795868-0 (Version None)
Quarter: 2008Q3

REPORT INFORMATION
  Report Type: 
  Country: None (occurrence: None)
  Receive Date: 20080701
  Receipt Date: 20080618
  Transmission Date: 20090109
  Serious: Yes (Hospitalization, Other)
  Sender: FDA-Public Use
  Company Number: JP-NOVOPROD-276778

PATIENT
  Age: 63 Year
  Sex: Male
  Weight: 52 kg

DRUGS (5)
  1. NOVORAPID 30 MIX CHU [Suspect]
     Indication: DIABETES MELLITUS
     Dosage: 20+12 UNITS
     Dates: end: 20080430
  2. AMLODIPINE [Concomitant]
  3. DEPAKENE                           /00228502/ [Concomitant]
     Dates: start: 20080201
  4. ARICEPT [Concomitant]
  5. NORVASC [Concomitant]

REACTIONS (4)
  - ANTI-INSULIN ANTIBODY INCREASED [None]
  - HYPOGLYCAEMIA [None]
  - HYPOGLYCAEMIC UNCONSCIOUSNESS [None]
  - INFARCTION [None]
